FAERS Safety Report 6426707-2 (Version None)
Quarter: 2009Q4

REPORT INFORMATION
  Report Type: 
  Country: None (occurrence: None)
  Receive Date: 20091104
  Receipt Date: 20091028
  Transmission Date: 20100525
  Serious: Yes (Death)
  Sender: FDA-Public Use
  Company Number: TR-ELI_LILLY_AND_COMPANY-TR200910007743

PATIENT
  Age: 77 Year
  Sex: Female

DRUGS (2)
  1. HUMALOG MIX 75/25 [Suspect]
     Indication: DIABETES MELLITUS
     Dosage: UNK UNK, 2/D
     Route: 058
  2. HUMALOG MIX 75/25 [Suspect]
     Dosage: 24 U, EACH EVENING
     Route: 058

REACTIONS (1)
  - HYPERGLYCAEMIA [None]
